FAERS Safety Report 16844340 (Version 1)
Quarter: 2019Q3

REPORT INFORMATION
  Report Type: Spontaneous
  Country: US (occurrence: US)
  Receive Date: 20190924
  Receipt Date: 20190924
  Transmission Date: 20191005
  Serious: Yes (Death)
  Sender: FDA-Public Use
  Company Number: US-PFIZER INC-2019052241

PATIENT
  Age: 70 Year
  Sex: Female

DRUGS (1)
  1. NITROSTAT [Suspect]
     Active Substance: NITROGLYCERIN
     Indication: CHEST PAIN
     Dosage: 0.4 MG, AS NEEDED (PLACE 1 TABLET (0.4 MG TABLET) UNDER THE TONGUE EVERY 5 (FIVE) MINUTES AS NEEDED)
     Route: 060
     Dates: start: 20190114

REACTIONS (1)
  - Death [Fatal]
